FAERS Safety Report 22923020 (Version 2)
Quarter: 2023Q4

REPORT INFORMATION
  Report Type: Spontaneous
  Country: US (occurrence: US)
  Receive Date: 20230908
  Receipt Date: 20231010
  Transmission Date: 20240110
  Serious: Yes (Hospitalization, Other)
  Sender: FDA-Public Use
  Company Number: US-IPSEN Group, Research and Development-2023-21202

PATIENT
  Sex: Male

DRUGS (1)
  1. SOMATULINE DEPOT [Suspect]
     Active Substance: LANREOTIDE ACETATE
     Indication: Carcinoid tumour of the small bowel
     Dosage: 120 MG/0.5 ML
     Route: 058
     Dates: start: 20170725

REACTIONS (3)
  - Exophthalmos [Unknown]
  - Product dose omission issue [Unknown]
  - Off label use [Unknown]
